FAERS Safety Report 19626560 (Version 2)
Quarter: 2021Q3

REPORT INFORMATION
  Report Type: Spontaneous
  Country: GB (occurrence: GB)
  Receive Date: 20210729
  Receipt Date: 20210806
  Transmission Date: 20211014
  Serious: Yes (Death, Other)
  Sender: FDA-Public Use
  Company Number: GB-JNJFOC-20210750982

PATIENT
  Age: 38 Year
  Sex: Male

DRUGS (3)
  1. HEROIN [Suspect]
     Active Substance: DIAMORPHINE
     Indication: PRODUCT USED FOR UNKNOWN INDICATION
     Dosage: UNK
     Route: 065
  2. DUROGESIC [Suspect]
     Active Substance: FENTANYL
     Indication: PRODUCT USED FOR UNKNOWN INDICATION
     Dosage: UNK
     Route: 065
  3. FENTANYL CITRATE. [Suspect]
     Active Substance: FENTANYL CITRATE
     Indication: PRODUCT USED FOR UNKNOWN INDICATION
     Route: 065

REACTIONS (2)
  - Overdose [Fatal]
  - Neoplasm malignant [Fatal]
